FAERS Safety Report 4416049-9 (Version None)
Quarter: 2004Q3

REPORT INFORMATION
  Report Type: 
  Country: None (occurrence: None)
  Receive Date: 20040804
  Receipt Date: 20040804
  Transmission Date: 20050211
  Serious: Yes (Death)
  Sender: FDA-Public Use
  Company Number: None

PATIENT
  Age: 65 Year
  Sex: Male
  Weight: 99.7913 kg

DRUGS (11)
  1. BEXXAR [Suspect]
     Indication: B-CELL LYMPHOMA RECURRENT
     Dates: start: 20040723
  2. ZOLOFT [Concomitant]
  3. CELEBREX [Concomitant]
  4. PRILOSEC [Concomitant]
  5. SSKI [Concomitant]
  6. FLOMAX [Concomitant]
  7. LASIX [Concomitant]
  8. COUMADIN [Concomitant]
  9. COREG [Concomitant]
  10. LANOXIN [Concomitant]
  11. ZOCOR [Concomitant]

REACTIONS (4)
  - BLOOD PRESSURE IMMEASURABLE [None]
  - CARDIAC ARREST [None]
  - INFUSION RELATED REACTION [None]
  - RESPIRATORY DISORDER [None]
